FAERS Safety Report 22714488 (Version 5)
Quarter: 2024Q3

REPORT INFORMATION
  Report Type: Report from Study
  Country: US (occurrence: US)
  Receive Date: 20230718
  Receipt Date: 20240722
  Transmission Date: 20241016
  Serious: Yes (Hospitalization, Other)
  Sender: ABBVIE
  Company Number: US-ABBVIE-5329103

PATIENT
  Sex: Male

DRUGS (5)
  1. SKYRIZI [Suspect]
     Active Substance: RISANKIZUMAB-RZAA
     Indication: Crohn^s disease
     Dosage: WEEK 12, FORM STRENGTH 360MG/2.4M, SKYRIZI CARTRIDGE
     Route: 058
     Dates: start: 20230703, end: 20230703
  2. SKYRIZI [Suspect]
     Active Substance: RISANKIZUMAB-RZAA
     Route: 058
     Dates: start: 20231031
  3. SKYRIZI [Suspect]
     Active Substance: RISANKIZUMAB-RZAA
     Indication: Crohn^s disease
     Dosage: WEEK 0, FORM STRENGTH: 600 MILLIGRAM
     Route: 042
     Dates: start: 20230411, end: 20230411
  4. SKYRIZI [Suspect]
     Active Substance: RISANKIZUMAB-RZAA
     Indication: Crohn^s disease
     Dosage: WEEK 4, FORM STRENGTH: 600 MILLIGRAM
     Route: 042
     Dates: start: 202305, end: 202305
  5. SKYRIZI [Suspect]
     Active Substance: RISANKIZUMAB-RZAA
     Indication: Crohn^s disease
     Dosage: WEEK 8, FORM STRENGTH: 600 MILLIGRAM
     Route: 042
     Dates: start: 202306, end: 202306

REACTIONS (25)
  - Diarrhoea [Not Recovered/Not Resolved]
  - Frequent bowel movements [Unknown]
  - Muscular weakness [Unknown]
  - Gastrointestinal sounds abnormal [Unknown]
  - Decreased appetite [Unknown]
  - Flatulence [Unknown]
  - Transfusion [Unknown]
  - Viral test positive [Recovered/Resolved]
  - Large intestine perforation [Unknown]
  - Asthenia [Unknown]
  - Insomnia [Unknown]
  - Faeces soft [Not Recovered/Not Resolved]
  - Rectal haemorrhage [Unknown]
  - Full blood count decreased [Unknown]
  - Fatigue [Unknown]
  - Vomiting [Unknown]
  - Weight decreased [Unknown]
  - Inappropriate schedule of product administration [Unknown]
  - Back pain [Unknown]
  - Feeding disorder [Unknown]
  - Abdominal distension [Recovered/Resolved]
  - Gastric ulcer [Unknown]
  - Malnutrition [Unknown]
  - Abdominal pain [Unknown]
  - Abdominal distension [Unknown]

NARRATIVE: CASE EVENT DATE: 20230101
